FAERS Safety Report 9123387 (Version 1)
Quarter: 2013Q1

REPORT INFORMATION
  Report Type: Spontaneous
  Country: US (occurrence: US)
  Receive Date: 20130227
  Receipt Date: 20130227
  Transmission Date: 20140127
  Serious: No
  Sender: FDA-Public Use
  Company Number: US-009507513-1302USA007197

PATIENT
  Sex: Female

DRUGS (7)
  1. TEMODAR [Suspect]
     Indication: GLIOBLASTOMA
     Dosage: UNK, 5 CONSECUTIVE DAYS A MONTH
  2. LUMIGAN [Concomitant]
  3. TIMOPTIC [Concomitant]
  4. ALCID (OMPERAZOLE) [Concomitant]
  5. DEXAMETHASONE [Concomitant]
     Dosage: UNK
  6. KEPPRA [Concomitant]
  7. COUMADIN [Concomitant]

REACTIONS (1)
  - Drug level increased [Unknown]
